FAERS Safety Report 4417094-X (Version None)
Quarter: 2004Q2

REPORT INFORMATION
  Report Type: 
  Country: None (occurrence: None)
  Receive Date: 20040629
  Receipt Date: 20040309
  Transmission Date: 20050107
  Serious: No
  Sender: FDA-Public Use
  Company Number: US068843

PATIENT
  Age: 56 Year
  Sex: Female
  Weight: 62.7 kg

DRUGS (4)
  1. ARANESP [Suspect]
     Indication: ANAEMIA OF MALIGNANT DISEASE
     Dosage: 200 MCG, 1 IN 1, SC
     Route: 058
     Dates: start: 20040303, end: 20040303
  2. GEMCITABINE HCL [Concomitant]
  3. ALPRAZOLAM [Concomitant]
  4. CONJUGATED ESTROGEN [Concomitant]

REACTIONS (1)
  - HYPERSENSITIVITY [None]
